FAERS Safety Report 9585682 (Version 2)
Quarter: 2013Q4

REPORT INFORMATION
  Report Type: Spontaneous
  Country: US (occurrence: US)
  Receive Date: 20131003
  Receipt Date: 20131017
  Transmission Date: 20140711
  Serious: Yes (Other)
  Sender: FDA-Public Use
  Company Number: US-009507513-1310USA000881

PATIENT
  Sex: Male
  Weight: 94.5 kg

DRUGS (3)
  1. PEGINTRON [Suspect]
     Indication: HEPATITIS C
     Dosage: REDIPEN
     Dates: start: 20130215
  2. REBETOL [Suspect]
     Dosage: UNK
     Route: 048
     Dates: start: 20130215
  3. VICTRELIS [Suspect]
     Indication: HEPATITIS C
     Dosage: UNK
     Route: 048
     Dates: start: 20130316

REACTIONS (9)
  - Aggression [Unknown]
  - Ammonia increased [Unknown]
  - Mood altered [Unknown]
  - Memory impairment [Unknown]
  - Anxiety [Unknown]
  - Insomnia [Unknown]
  - Amnesia [Unknown]
  - Decreased appetite [Unknown]
  - Weight decreased [Unknown]
